FAERS Safety Report 15087515 (Version 1)
Quarter: 2018Q2

REPORT INFORMATION
  Report Type: Spontaneous
  Country: CA (occurrence: CA)
  Receive Date: 20180628
  Receipt Date: 20180628
  Transmission Date: 20180711
  Serious: Yes (Hospitalization, Other)
  Sender: FDA-Public Use
  Company Number: CA-BAXTER-2018BAX017975

PATIENT
  Age: 74 Year
  Sex: Male

DRUGS (1)
  1. 0.9% SODIUM CHLORIDE IRRIGATION [Suspect]
     Active Substance: SODIUM CHLORIDE
     Indication: PRODUCT USED FOR UNKNOWN INDICATION
     Dosage: 500 ML
     Route: 065

REACTIONS (3)
  - Gastrointestinal disorder [Unknown]
  - Peritonitis [Unknown]
  - Intestinal perforation [Unknown]

NARRATIVE: CASE EVENT DATE: 20180606
